FAERS Safety Report 7239876-1 (Version None)
Quarter: 2011Q1

REPORT INFORMATION
  Report Type: 
  Country: None (occurrence: None)
  Receive Date: 20110122
  Receipt Date: 20101214
  Transmission Date: 20110831
  Serious: No
  Sender: FDA-Public Use
  Company Number: US-ALLERGAN-1016226US

PATIENT
  Age: 64 Year
  Sex: Female

DRUGS (2)
  1. LATISSE [Suspect]
     Indication: HYPOTRICHOSIS
     Dosage: 1 GTT, EVERY OTHER NIGHT
     Dates: start: 20101001
  2. LATISSE [Suspect]
     Dosage: 1 GTT, QHS
     Dates: start: 20100401

REACTIONS (3)
  - EYELID INFECTION [None]
  - OCULAR HYPERAEMIA [None]
  - WRONG TECHNIQUE IN DRUG USAGE PROCESS [None]
